FAERS Safety Report 4305757-6 (Version None)
Quarter: 2004Q1

REPORT INFORMATION
  Report Type: 
  Country: None (occurrence: None)
  Receive Date: 20040225
  Receipt Date: 20040213
  Transmission Date: 20041129
  Serious: Yes (Other)
  Sender: FDA-Public Use
  Company Number: NSADSS2002028331

PATIENT
  Age: 56 Year
  Sex: Female
  Weight: 95.2554 kg

DRUGS (30)
  1. REMICADE [Suspect]
     Indication: PSORIATIC ARTHROPATHY
     Dosage: SEE IMAGE
     Route: 041
     Dates: start: 20011129
  2. REMICADE [Suspect]
     Indication: PSORIATIC ARTHROPATHY
     Dosage: SEE IMAGE
     Route: 041
     Dates: start: 20011231
  3. REMICADE [Suspect]
     Indication: PSORIATIC ARTHROPATHY
     Dosage: SEE IMAGE
     Route: 041
     Dates: start: 20020213
  4. REMICADE [Suspect]
     Indication: PSORIATIC ARTHROPATHY
     Dosage: SEE IMAGE
     Route: 041
     Dates: start: 20020411
  5. REMICADE [Suspect]
     Indication: PSORIATIC ARTHROPATHY
     Dosage: SEE IMAGE
     Route: 041
     Dates: start: 20020606
  6. REMICADE [Suspect]
     Indication: PSORIATIC ARTHROPATHY
     Dosage: SEE IMAGE
     Route: 041
     Dates: start: 20020730
  7. REMICADE [Suspect]
     Indication: PSORIATIC ARTHROPATHY
     Dosage: SEE IMAGE
     Route: 041
     Dates: start: 20021001
  8. REMICADE [Suspect]
     Indication: PSORIATIC ARTHROPATHY
     Dosage: SEE IMAGE
     Route: 041
     Dates: start: 20031126
  9. REMICADE [Suspect]
     Indication: PSORIATIC ARTHROPATHY
     Dosage: SEE IMAGE
     Route: 041
     Dates: start: 20040115
  10. REMICADE [Suspect]
  11. REMICADE [Suspect]
  12. REMICADE [Suspect]
  13. REMICADE [Suspect]
  14. REMICADE [Suspect]
  15. REMICADE [Suspect]
     Dates: start: 20021001
  16. ENBREL [Suspect]
     Indication: PSORIATIC ARTHROPATHY
     Dosage: 25 MG 2 IN 1 WEEK, SUBCUTANEOUS
     Route: 058
     Dates: start: 19990811
  17. ENBREL [Suspect]
     Indication: PSORIATIC ARTHROPATHY
     Dosage: 25 MG 2 IN 1 WEEK, SUBCUTANEOUS
     Route: 058
     Dates: start: 20011001
  18. METHOTREXATE SODIUM [Concomitant]
  19. DARVOCET (PROPACET) [Concomitant]
  20. PREDNISONE [Concomitant]
  21. VIOXX [Concomitant]
  22. PREMARIN [Concomitant]
  23. SYNTHROID [Concomitant]
  24. DYAZIDE [Concomitant]
  25. FOLIC ACID [Concomitant]
  26. PRINIVIL [Concomitant]
  27. PREVACID [Concomitant]
  28. NASACORT [Concomitant]
  29. DIPROLENE CREAM (BETAMETHASONE DIPROPIONATE) [Concomitant]
  30. CITRACAL  (CALCIUM CITRATE) [Concomitant]

REACTIONS (1)
  - SPINDLE CELL SARCOMA [None]
